FAERS Safety Report 4684047-6 (Version None)
Quarter: 2005Q2

REPORT INFORMATION
  Report Type: 
  Country: None (occurrence: None)
  Receive Date: 20050525
  Receipt Date: 20050301
  Transmission Date: 20051028
  Serious: Yes (Other)
  Sender: FDA-Public Use
  Company Number: 2005038520

PATIENT
  Sex: Female
  Weight: 48.9885 kg

DRUGS (3)
  1. NICOTROL [Suspect]
     Indication: SMOKING CESSATION THERAPY
     Dosage: 3 SPRAYS HOURLY, NASAL
     Route: 045
     Dates: start: 20041201
  2. SERTRALINE HYDROCHLORIDE [Concomitant]
  3. ESTRADIOL [Concomitant]

REACTIONS (5)
  - ACNE [None]
  - DEPENDENCE [None]
  - IRRITABILITY [None]
  - LOCAL SWELLING [None]
  - RHINORRHOEA [None]
